FAERS Safety Report 13584454 (Version 2)
Quarter: 2017Q2

REPORT INFORMATION
  Report Type: Spontaneous
  Country: FR (occurrence: FR)
  Receive Date: 20170526
  Receipt Date: 20170613
  Transmission Date: 20170830
  Serious: Yes (Hospitalization)
  Sender: FDA-Public Use
  Company Number: FR-MERCK KGAA-2021264

PATIENT
  Age: 36 Year
  Sex: Female

DRUGS (5)
  1. UN-ALFA [Concomitant]
     Active Substance: ALFACALCIDOL
  2. LEVOTHYROX [Suspect]
     Active Substance: LEVOTHYROXINE
     Route: 048
     Dates: start: 201705
  3. LEVOTHYROX [Suspect]
     Active Substance: LEVOTHYROXINE
  4. LEVOTHYROX [Suspect]
     Active Substance: LEVOTHYROXINE
     Route: 048
     Dates: start: 1999
  5. NOVOTHYROX [Suspect]
     Active Substance: LEVOTHYROXINE SODIUM
     Indication: POST PROCEDURAL HYPOTHYROIDISM
     Dates: start: 20170503

REACTIONS (3)
  - Hyperthyroidism [Recovered/Resolved]
  - Malaise [Unknown]
  - Hypertension [Recovered/Resolved]

NARRATIVE: CASE EVENT DATE: 201705
